FAERS Safety Report 19468429 (Version 5)
Quarter: 2021Q3

REPORT INFORMATION
  Report Type: Spontaneous
  Country: US (occurrence: US)
  Receive Date: 20210628
  Receipt Date: 20210805
  Transmission Date: 20211014
  Serious: Yes (Other)
  Sender: FDA-Public Use
  Company Number: US-ORGANON-O2106USA002213

PATIENT
  Age: 25 Year
  Sex: Female

DRUGS (1)
  1. NEXPLANON [Suspect]
     Active Substance: ETONOGESTREL
     Dosage: 1 IMPLANT IN LEFT UPPER ARM IN NON DOMINANT ARM EVERY 3 YEARS
     Dates: start: 20210426, end: 20210623

REACTIONS (6)
  - Device dislocation [Recovered/Resolved]
  - Device expulsion [Recovered/Resolved]
  - Device kink [Recovered/Resolved]
  - Pain [Unknown]
  - Device placement issue [Recovered/Resolved]
  - Complication associated with device [Recovered/Resolved]

NARRATIVE: CASE EVENT DATE: 2021
